FAERS Safety Report 5125194-4 (Version None)
Quarter: 2006Q4

REPORT INFORMATION
  Report Type: 
  Country: None (occurrence: None)
  Receive Date: 20061010
  Receipt Date: 20061010
  Transmission Date: 20070319
  Serious: Yes (Hospitalization)
  Sender: FDA-Public Use
  Company Number: None

PATIENT
  Age: 84 Year
  Sex: Male

DRUGS (9)
  1. METOPROLOL TARTRATE [Suspect]
     Indication: HYPERTENSION
     Dosage: 12.5 MG BID
     Dates: start: 20051001
  2. ZOCOR [Concomitant]
  3. ZOLOFT [Concomitant]
  4. TERAZOSIN HCL [Concomitant]
  5. OSCAL [Concomitant]
  6. LORATADINE [Concomitant]
  7. GLIPIZIDE [Concomitant]
  8. FUROSEMIDE [Concomitant]
  9. OMEPRAZOLE [Concomitant]

REACTIONS (2)
  - BRADYCARDIA [None]
  - SYNCOPE [None]
